FAERS Safety Report 17230066 (Version 1)
Quarter: 2020Q1

REPORT INFORMATION
  Report Type: Report from Study
  Country: GB (occurrence: GB)
  Receive Date: 20200103
  Receipt Date: 20200103
  Transmission Date: 20200409
  Serious: Yes (Death)
  Sender: FDA-Public Use
  Company Number: NVSC2019GB083966

PATIENT
  Sex: Male

DRUGS (1)
  1. SANDOSTATIN LAR DEPOT [Suspect]
     Active Substance: OCTREOTIDE ACETATE
     Indication: CHRONIC KIDNEY DISEASE
     Dosage: 30 MG, Q3W
     Route: 030
     Dates: start: 2019

REACTIONS (3)
  - Product use in unapproved indication [Unknown]
  - Death [Fatal]
  - Inappropriate schedule of product administration [Unknown]
